FAERS Safety Report 26146217 (Version 1)
Quarter: 2025Q4

REPORT INFORMATION
  Report Type: Report from Study
  Country: CA (occurrence: CA)
  Receive Date: 20251211
  Receipt Date: 20251211
  Transmission Date: 20260118
  Serious: Yes (Death)
  Sender: OTSUKA
  Company Number: CA-MMM-Otsuka-ZWJNBMPC

PATIENT
  Sex: Male

DRUGS (1)
  1. ARIPIPRAZOLE [Suspect]
     Active Substance: ARIPIPRAZOLE
     Indication: Product used for unknown indication
     Dosage: 400 MG EVERY 3 WEEKS

REACTIONS (2)
  - Death [Fatal]
  - Inappropriate schedule of product administration [Unknown]
